FAERS Safety Report 9816505 (Version 1)
Quarter: 2014Q1

REPORT INFORMATION
  Report Type: Spontaneous
  Country: GB (occurrence: GB)
  Receive Date: 20140114
  Receipt Date: 20140114
  Transmission Date: 20141002
  Serious: Yes (Other)
  Sender: FDA-Public Use
  Company Number: GB-WATSON-2013-24417

PATIENT
  Age: 34 Year
  Sex: Female
  Weight: 63 kg

DRUGS (1)
  1. DOXYCYCLINE HYCLATE (UNKNOWN) [Suspect]
     Indication: SINUSITIS
     Dosage: UNK, 200 MG/DAY LOADING DOSE, 100 MG/DAY THEREAFTER
     Route: 048
     Dates: start: 20131118

REACTIONS (1)
  - Nausea [Recovered/Resolved]
